FAERS Safety Report 18722257 (Version 7)
Quarter: 2024Q2

REPORT INFORMATION
  Report Type: Spontaneous
  Country: DE (occurrence: DE)
  Receive Date: 20210111
  Receipt Date: 20240506
  Transmission Date: 20240716
  Serious: Yes (Life-Threatening, Hospitalization, Other)
  Sender: FDA-Public Use
  Company Number: DE-ASPEN-GLO2020DE012299

PATIENT
  Age: 53 Year
  Sex: Female

DRUGS (18)
  1. AMLODIPINE [Suspect]
     Active Substance: AMLODIPINE BESYLATE
     Indication: Product used for unknown indication
     Dosage: 5 MILLIGRAM, ONCE A DAY
     Route: 065
  2. BUPIVACAINE [Suspect]
     Active Substance: BUPIVACAINE
     Indication: Infiltration anaesthesia
     Dosage: UNK (ON JANUARY 14 AND 18)
     Route: 065
  3. BUPIVACAINE [Suspect]
     Active Substance: BUPIVACAINE
     Dosage: UNK (ON JANUARY 15 AND 17)
     Route: 008
  4. BUPIVACAINE [Suspect]
     Active Substance: BUPIVACAINE
     Dosage: UNK (ON JANUARY 21)
     Route: 037
  5. BISOPROLOL [Suspect]
     Active Substance: BISOPROLOL\BISOPROLOL FUMARATE
     Indication: Product used for unknown indication
     Dosage: 5 MILLIGRAM, ONCE A DAY
     Route: 065
  6. CELECOXIB [Suspect]
     Active Substance: CELECOXIB
     Indication: Pain
     Dosage: 100 MILLIGRAM, TWO TIMES A DAY
     Route: 048
  7. CANDESARTAN [Suspect]
     Active Substance: CANDESARTAN
     Indication: Pain
     Dosage: 16 MILLIGRAM
     Route: 065
  8. DEXAMETHASONE [Suspect]
     Active Substance: DEXAMETHASONE
     Indication: Infiltration anaesthesia
     Dosage: UNK
     Route: 050
  9. LEVOTHYROXINE SODIUM [Suspect]
     Active Substance: LEVOTHYROXINE SODIUM
     Indication: Product used for unknown indication
     Dosage: 125 MICROGRAM, ONCE A DAY
     Route: 065
  10. LEVOTHYROXINE SODIUM [Suspect]
     Active Substance: LEVOTHYROXINE SODIUM
     Dosage: 12 MICROGRAM, ONCE A DAY
     Route: 065
  11. METAMIZOLE [Suspect]
     Active Substance: METAMIZOLE
     Indication: Pain
     Dosage: 1 GRAM, FOUR TIMES/DAY
     Route: 042
  12. NALOXONE HYDROCHLORIDE\OXYCODONE HYDROCHLORIDE [Suspect]
     Active Substance: NALOXONE HYDROCHLORIDE\OXYCODONE HYDROCHLORIDE
     Indication: Pain
     Dosage: 20 MILLIGRAM, TWO TIMES A DAY
     Route: 048
  13. PRILOCAINE HYDROCHLORIDE [Suspect]
     Active Substance: PRILOCAINE HYDROCHLORIDE
     Indication: Infiltration anaesthesia
     Dosage: UNK (ON JANUARY 15 AND 17)
     Route: 008
  14. TORSEMIDE [Suspect]
     Active Substance: TORSEMIDE
     Indication: Product used for unknown indication
     Dosage: 5 MILLIGRAM, ONCE A DAY
     Route: 065
  15. TRIAMCINOLONE [Suspect]
     Active Substance: TRIAMCINOLONE
     Indication: Infiltration anaesthesia
     Dosage: UNK (JANUARY 15 AND 17)
     Route: 065
  16. TRIAMCINOLONE [Suspect]
     Active Substance: TRIAMCINOLONE
     Dosage: 40 MILLIGRAM, JANUARY 21
     Route: 037
  17. TRIAMCINOLONE [Suspect]
     Active Substance: TRIAMCINOLONE
     Dosage: 40 MILLIGRAM, JANUARY 15 AND 17
     Route: 065
  18. VALPROATE [Suspect]
     Active Substance: VALPROIC ACID
     Indication: Product used for unknown indication
     Dosage: 300 MILLIGRAM, TWO TIMES A DAY
     Route: 065

REACTIONS (1)
  - Necrotising fasciitis [Recovering/Resolving]

NARRATIVE: CASE EVENT DATE: 20191004
